FAERS Safety Report 21858249 (Version 1)
Quarter: 2023Q1

REPORT INFORMATION
  Report Type: Report from Study
  Country: US (occurrence: US)
  Receive Date: 20230113
  Receipt Date: 20230113
  Transmission Date: 20230418
  Serious: No
  Sender: FDA-Public Use
  Company Number: US-ABBVIE-4238289

PATIENT
  Sex: Female

DRUGS (2)
  1. HUMIRA [Suspect]
     Active Substance: ADALIMUMAB
     Indication: Crohn^s disease
     Route: 058
  2. HISTAMINE [Suspect]
     Active Substance: HISTAMINE
     Indication: Product used for unknown indication
     Route: 065

REACTIONS (2)
  - Histamine intolerance [Not Recovered/Not Resolved]
  - Pruritus [Not Recovered/Not Resolved]
